FAERS Safety Report 5060020-3 (Version None)
Quarter: 2006Q3

REPORT INFORMATION
  Report Type: 
  Country: None (occurrence: None)
  Receive Date: 20060724
  Receipt Date: 20060710
  Transmission Date: 20061208
  Serious: Yes (Other)
  Sender: FDA-Public Use
  Company Number: FRWYE767922JUN06

PATIENT
  Sex: Female
  Weight: 80 kg

DRUGS (2)
  1. ENBREL [Suspect]
     Indication: ANKYLOSING SPONDYLITIS
     Route: 058
     Dates: start: 20050901, end: 20060621
  2. DAFALGAN [Concomitant]
     Dosage: 3-4 G TOTAL DAILY
     Route: 048
     Dates: start: 20060421

REACTIONS (4)
  - CELLULITIS [None]
  - OEDEMA PERIPHERAL [None]
  - VEIN PAIN [None]
  - VENOUS INSUFFICIENCY [None]
